FAERS Safety Report 24902800 (Version 4)
Quarter: 2025Q3

REPORT INFORMATION
  Report Type: Report from Study
  Country: CA (occurrence: CA)
  Receive Date: 20250130
  Receipt Date: 20250919
  Transmission Date: 20251020
  Serious: Yes (Other)
  Sender: CHIESI
  Company Number: CA-CHIESI-2021CHF06696

PATIENT
  Age: 26 Year
  Sex: Female
  Weight: 43 kg

DRUGS (10)
  1. DEFERIPRONE [Suspect]
     Active Substance: DEFERIPRONE
     Indication: Thalassaemia
     Route: 048
     Dates: start: 20191018
  2. DEFERIPRONE [Suspect]
     Active Substance: DEFERIPRONE
     Dosage: 1000 MILLIGRAM, QD
     Route: 048
  3. DEFERIPRONE [Suspect]
     Active Substance: DEFERIPRONE
     Dosage: UNK UNK, TID
     Route: 048
  4. DEFERIPRONE [Suspect]
     Active Substance: DEFERIPRONE
     Dosage: 4000 MILLIGRAM, QD
     Route: 048
  5. AZATHIOPRINE [Concomitant]
     Active Substance: AZATHIOPRINE
     Indication: Product used for unknown indication
  6. HUMALOG [Concomitant]
     Active Substance: INSULIN LISPRO
     Indication: Product used for unknown indication
  7. HYDROXYCHLOROQUINE [Concomitant]
     Active Substance: HYDROXYCHLOROQUINE
     Indication: Product used for unknown indication
     Dates: start: 2024
  8. PREDNISONE [Concomitant]
     Active Substance: PREDNISONE
     Indication: Product used for unknown indication
  9. RAMIPRIL [Concomitant]
     Active Substance: RAMIPRIL
     Indication: Product used for unknown indication
  10. COLCHICINE [Concomitant]
     Active Substance: COLCHICINE
     Indication: Product used for unknown indication
     Dates: start: 2024

REACTIONS (9)
  - Vascular device infection [Recovered/Resolved]
  - Product dose omission issue [Unknown]
  - Illness [Unknown]
  - Dysphagia [Unknown]
  - Infection [Unknown]
  - Off label use [Unknown]
  - Treatment noncompliance [Unknown]
  - Intentional dose omission [Unknown]
  - Treatment noncompliance [Unknown]

NARRATIVE: CASE EVENT DATE: 20241201
